FAERS Safety Report 14738452 (Version 3)
Quarter: 2018Q2

REPORT INFORMATION
  Report Type: Spontaneous
  Country: US (occurrence: US)
  Receive Date: 20180409
  Receipt Date: 20180521
  Transmission Date: 20180711
  Serious: Yes (Life-Threatening, Hospitalization, Other)
  Sender: FDA-Public Use
  Company Number: US-PFIZER INC-2015450150

PATIENT
  Age: 7 Year
  Sex: Male
  Weight: 23 kg

DRUGS (10)
  1. CLONAZEPAM. [Concomitant]
     Active Substance: CLONAZEPAM
     Dosage: UNK
  2. LEVOTHYROXINE. [Concomitant]
     Active Substance: LEVOTHYROXINE
     Dosage: UNK
  3. CALCIUM CARBONATE. [Concomitant]
     Active Substance: CALCIUM CARBONATE
     Dosage: 1250 MG, 3X/DAY
  4. NORMAL SALINE [Concomitant]
     Active Substance: SODIUM CHLORIDE
     Indication: MEDICATION DILUTION
     Dosage: UNK
     Route: 042
  5. GABAPENTIN. [Concomitant]
     Active Substance: GABAPENTIN
     Dosage: UNK
  6. LEVETIRACETAM. [Concomitant]
     Active Substance: LEVETIRACETAM
     Dosage: UNK
  7. LEVOCARNITINE. [Concomitant]
     Active Substance: LEVOCARNITINE
     Dosage: UNK
  8. BOTULINUM TOXIN [Concomitant]
     Active Substance: BOTULINUM TOXIN NOS
     Indication: SALIVARY HYPERSECRETION
     Dosage: UNK
     Dates: start: 201504
  9. BACLOFEN. [Concomitant]
     Active Substance: BACLOFEN
     Dosage: UNK
  10. ZOLEDRONIC ACID [Suspect]
     Active Substance: ZOLEDRONIC ACID
     Indication: OSTEOPOROSIS
     Dosage: 3 MG, (0.013 MG/KG)
     Route: 042
     Dates: start: 201504

REACTIONS (14)
  - Pyrexia [Recovered/Resolved]
  - Tachypnoea [Recovered/Resolved]
  - Thrombocytopenia [Recovered/Resolved]
  - Shock [Recovering/Resolving]
  - Metabolic acidosis [Recovered/Resolved]
  - Diarrhoea [Recovering/Resolving]
  - Systemic inflammatory response syndrome [Recovering/Resolving]
  - Acute respiratory distress syndrome [Recovering/Resolving]
  - Multiple organ dysfunction syndrome [Recovering/Resolving]
  - Hypotension [Recovered/Resolved]
  - Abdominal distension [Recovering/Resolving]
  - Pulmonary haemorrhage [Recovering/Resolving]
  - Tachycardia [Recovered/Resolved]
  - Coagulopathy [Recovered/Resolved]

NARRATIVE: CASE EVENT DATE: 201504
